FAERS Safety Report 21406987 (Version 1)
Quarter: 2022Q4

REPORT INFORMATION
  Report Type: Spontaneous
  Country: US (occurrence: None)
  Receive Date: 20221003
  Receipt Date: 20221003
  Transmission Date: 20230113
  Serious: No
  Sender: FDA-Public Use
  Company Number: None

PATIENT
  Age: 20 Year
  Sex: Female

DRUGS (1)
  1. ACTEMRA [Suspect]
     Active Substance: TOCILIZUMAB
     Indication: Juvenile idiopathic arthritis
     Dates: start: 20220815

REACTIONS (5)
  - Device failure [None]
  - Device leakage [None]
  - Needle issue [None]
  - Drug dose omission by device [None]
  - Incorrect dose administered by device [None]

NARRATIVE: CASE EVENT DATE: 20220913
